FAERS Safety Report 4616694-1 (Version None)
Quarter: 2005Q2

REPORT INFORMATION
  Report Type: 
  Country: None (occurrence: None)
  Receive Date: 20050311
  Receipt Date: 20050209
  Transmission Date: 20051028
  Serious: No
  Sender: FDA-Public Use
  Company Number: 2005-00222

PATIENT
  Age: 67 Year
  Sex: Female
  Weight: 74.4 kg

DRUGS (5)
  1. VELCADE [Suspect]
     Indication: MULTIPLE MYELOMA
     Dosage: 2.00 MG, IV BOLUS
     Route: 040
     Dates: start: 20031130
  2. DOXIL [Suspect]
     Indication: MULTIPLE MYELOMA
     Dosage: INTRAVENOUS
     Route: 042
     Dates: start: 20031130
  3. SYNTHROID [Concomitant]
  4. ENALAPRIL MALEATE [Concomitant]
  5. COREG [Concomitant]

REACTIONS (1)
  - DYSPNOEA [None]
